FAERS Safety Report 14468965 (Version 1)
Quarter: 2018Q1

REPORT INFORMATION
  Report Type: Spontaneous
  Country: US (occurrence: US)
  Receive Date: 20180131
  Receipt Date: 20180131
  Transmission Date: 20180509
  Serious: No
  Sender: FDA-Public Use
  Company Number: US-ORPHAN EUROPE-2041155

PATIENT
  Age: 26 Year
  Sex: Female

DRUGS (1)
  1. CARBAGLU [Suspect]
     Active Substance: CARGLUMIC ACID
     Indication: HYPERAMMONAEMIA
     Dates: start: 20170817

REACTIONS (3)
  - Viral infection [Unknown]
  - Pyrexia [Unknown]
  - Hyperhidrosis [Unknown]
